FAERS Safety Report 5886667-X (Version None)
Quarter: 2008Q3

REPORT INFORMATION
  Report Type: 
  Country: None (occurrence: None)
  Receive Date: 20080917
  Receipt Date: 20080910
  Transmission Date: 20090109
  Serious: Yes (Hospitalization)
  Sender: FDA-Public Use
  Company Number: PHHY2008FR14813

PATIENT
  Age: 22 Year
  Sex: Female

DRUGS (2)
  1. VIVELLE-DOT [Suspect]
     Route: 062
  2. ANDROCUR [Concomitant]

REACTIONS (3)
  - FATIGUE [None]
  - FEEDING DISORDER [None]
  - MUSCULAR WEAKNESS [None]
